FAERS Safety Report 6734485-2 (Version None)
Quarter: 2010Q2

REPORT INFORMATION
  Report Type: 
  Country: None (occurrence: None)
  Receive Date: 20100520
  Receipt Date: 20100507
  Transmission Date: 20101027
  Serious: Yes (Death, Hospitalization)
  Sender: FDA-Public Use
  Company Number: US-ELI_LILLY_AND_COMPANY-US201001001859

PATIENT
  Sex: Female

DRUGS (20)
  1. FORTEO [Suspect]
     Indication: OSTEOPOROSIS
     Dosage: 20 UG, DAILY (1/D)
     Dates: start: 20090501
  2. CYMBALTA [Suspect]
     Dosage: 20 MG, DAILY (1/D)
     Dates: start: 20090201
  3. GABAPENTIN [Concomitant]
     Dosage: 900 MG, UNK
  4. AMOXICILLIN [Concomitant]
  5. BENAZEPRIL HYDROCHLORIDE [Concomitant]
     Dosage: 20 MG, UNK
  6. POTASSIUM CHLORIDE [Concomitant]
     Dosage: 20 MEQ, UNK
  7. PROPRANOLOL [Concomitant]
     Dosage: 7 MG, UNK
  8. LASIX [Concomitant]
     Dosage: 40 MG, UNK
  9. VESICARE [Concomitant]
  10. LUNESTA [Concomitant]
     Dosage: 3 MG, UNK
  11. LOTENSIN [Concomitant]
     Dosage: 240 MG, UNK
  12. ATENOLOL [Concomitant]
     Route: 055
  13. ALBUTEROL [Concomitant]
     Route: 055
  14. LEVOTHYROXINE SODIUM [Concomitant]
     Dosage: 50 UG, UNK
  15. PRILOSEC [Concomitant]
     Dosage: 20 MG, UNK
  16. ACTOS [Concomitant]
     Dosage: 30 MG, DAILY (1/D)
  17. SIMVASTATIN [Concomitant]
     Dosage: 20 MG, UNK
  18. HYDROCODONE [Concomitant]
     Dosage: 500 MG, UNK
  19. NYSTATIN [Concomitant]
  20. VITAMIN D [Concomitant]

REACTIONS (6)
  - CARDIAC FAILURE CONGESTIVE [None]
  - CONCUSSION [None]
  - EXCORIATION [None]
  - FALL [None]
  - NEOPLASM MALIGNANT [None]
  - PAIN [None]
